FAERS Safety Report 8770579 (Version 2)
Quarter: 2012Q4

REPORT INFORMATION
  Report Type: 
  Country: JP (occurrence: JP)
  Receive Date: 20120906
  Receipt Date: 20120928
  Transmission Date: 20130627
  Serious: Yes (Other)
  Sender: FDA-Public Use
  Company Number: JP-009507513-1209JPN001240

PATIENT

DRUGS (2)
  1. INDOCIN [Suspect]
     Indication: PROPHYLAXIS
     Dosage: 0.1 mg, per dose
     Route: 042
  2. MENATETRENONE [Suspect]
     Indication: PROPHYLAXIS
     Dosage: UNK
     Route: 042

REACTIONS (2)
  - Patent ductus arteriosus repair [Unknown]
  - Drug ineffective [Unknown]
